FAERS Safety Report 12524782 (Version 1)
Quarter: 2016Q3

REPORT INFORMATION
  Report Type: Spontaneous
  Country: FR (occurrence: FR)
  Receive Date: 20160704
  Receipt Date: 20160704
  Transmission Date: 20161109
  Serious: Yes (Hospitalization)
  Sender: FDA-Public Use
  Company Number: FR-PFIZER INC-2016325162

PATIENT
  Age: 74 Year
  Sex: Male

DRUGS (6)
  1. COTELLIC [Suspect]
     Active Substance: COBIMETINIB
     Dosage: UNK
     Route: 048
  2. ZELBORAF [Concomitant]
     Active Substance: VEMURAFENIB
     Dosage: UNK
  3. CORDARONE [Suspect]
     Active Substance: AMIODARONE HYDROCHLORIDE
     Dosage: 200 MG, DAILY
     Route: 048
  4. COTELLIC [Suspect]
     Active Substance: COBIMETINIB
     Dosage: 60 MG, PER DAY 21 DAYS PER 28
     Route: 048
     Dates: start: 20160210, end: 20160302
  5. DABRAFENIB [Concomitant]
     Active Substance: DABRAFENIB
     Indication: NEUTROPENIA
     Dosage: UNK
     Dates: start: 20151012, end: 20160129
  6. TRAMETINIB [Concomitant]
     Active Substance: TRAMETINIB
     Indication: NEUTROPENIA
     Dosage: UNK
     Dates: start: 20151012, end: 20160129

REACTIONS (4)
  - Hypokalaemia [Recovered/Resolved]
  - Rhabdomyolysis [Recovered/Resolved]
  - Diarrhoea [Recovered/Resolved]
  - Folliculitis [Unknown]

NARRATIVE: CASE EVENT DATE: 20160301
